FAERS Safety Report 6888339-1 (Version None)
Quarter: 2010Q3

REPORT INFORMATION
  Report Type: 
  Country: None (occurrence: None)
  Receive Date: 20100730
  Receipt Date: 20100725
  Transmission Date: 20110219
  Serious: Yes (Death)
  Sender: FDA-Public Use
  Company Number: BD-BRACCO-000002

PATIENT
  Sex: Female

DRUGS (1)
  1. IOPAMIRO [Suspect]
     Indication: HYSTEROSALPINGOGRAM

REACTIONS (1)
  - DEATH [None]
